FAERS Safety Report 5589445-4 (Version None)
Quarter: 2008Q1

REPORT INFORMATION
  Report Type: 
  Country: None (occurrence: None)
  Receive Date: 20080114
  Receipt Date: 20080108
  Transmission Date: 20080703
  Serious: Yes (Other)
  Sender: FDA-Public Use
  Company Number: US-ROCHE-539542

PATIENT
  Age: 60 Year
  Sex: Male

DRUGS (2)
  1. PEG-INTERFERON A-2A (RO 25-8310) [Suspect]
     Dosage: PATIENT REPORTED DID NOT REMEMBER DOSAGE.
     Route: 065
     Dates: start: 20070910, end: 20071210
  2. RIBAVIRIN [Suspect]
     Dosage: PATIENT REPORTED DID NOT REMEMBER DOSAGE.
     Route: 065
     Dates: start: 20070910, end: 20071210

REACTIONS (1)
  - HEPATIC MASS [None]
